FAERS Safety Report 20795405 (Version 1)
Quarter: 2022Q2

REPORT INFORMATION
  Report Type: Spontaneous
  Country: IN (occurrence: IN)
  Receive Date: 20220506
  Receipt Date: 20220506
  Transmission Date: 20220720
  Serious: Yes (Other)
  Sender: FDA-Public Use
  Company Number: IN-PFIZER INC-2020483972

PATIENT
  Age: 63 Year
  Sex: Male

DRUGS (6)
  1. DACOMITINIB [Suspect]
     Active Substance: DACOMITINIB
     Indication: Pulmonary mass
     Dosage: 45 MG, 1X/DAY
     Route: 048
     Dates: start: 20201109, end: 20210201
  2. DACOMITINIB [Suspect]
     Active Substance: DACOMITINIB
     Indication: Metastases to lung
     Dosage: 30 MG, 1X/DAY (1 HOUR BEFORE/2 HOUR AFTER FOOD)
     Route: 048
     Dates: start: 20201201
  3. DACOMITINIB [Suspect]
     Active Substance: DACOMITINIB
     Dosage: 30 MG, 1X/DAY
     Route: 048
     Dates: start: 20210201
  4. DACOMITINIB [Suspect]
     Active Substance: DACOMITINIB
     Dosage: 30 MG, 1X/DAY (1 HOUR BEFORE/2 HOUR AFTER FOOD)
     Dates: start: 20210405
  5. METOCLOPRAMIDE HYDROCHLORIDE [Concomitant]
     Active Substance: METOCLOPRAMIDE HYDROCHLORIDE
     Dosage: 1 DF, AS NEEDED (MAX 3 TABS/DAY)
  6. CLINDAMYCIN [Concomitant]
     Active Substance: CLINDAMYCIN
     Dosage: UNK (LOCAL APPLICATION)

REACTIONS (10)
  - Carcinoembryonic antigen increased [Unknown]
  - Rash [Unknown]
  - Platelet count decreased [Unknown]
  - Monocyte percentage increased [Unknown]
  - Eosinophil percentage increased [Unknown]
  - Pruritus [Unknown]
  - Neoplasm progression [Unknown]
  - Blood pressure increased [Unknown]
  - Heart rate increased [Unknown]
  - Off label use [Unknown]

NARRATIVE: CASE EVENT DATE: 20201201
